FAERS Safety Report 9029644 (Version 1)
Quarter: 2013Q1

REPORT INFORMATION
  Report Type: Spontaneous
  Country: US (occurrence: US)
  Receive Date: 20130125
  Receipt Date: 20130125
  Transmission Date: 20140127
  Serious: Yes (Hospitalization)
  Sender: FDA-Public Use
  Company Number: US-JNJFOC-20130109061

PATIENT
  Age: 79 Year
  Sex: Female

DRUGS (16)
  1. DOXORUBICIN HYDROCHLORIDE [Suspect]
     Indication: OVARIAN CANCER
     Route: 042
     Dates: start: 20100408
  2. PACLITAXEL [Concomitant]
     Indication: NEOPLASM MALIGNANT
     Route: 065
     Dates: start: 200911, end: 20100216
  3. PACLITAXEL [Concomitant]
     Indication: NEOPLASM MALIGNANT
     Route: 065
     Dates: start: 200903, end: 20090325
  4. CARBOPLATIN [Concomitant]
     Indication: NEOPLASM MALIGNANT
     Route: 065
     Dates: start: 200903, end: 20090617
  5. BEVACIZUMAB [Concomitant]
     Indication: NEOPLASM MALIGNANT
     Route: 065
     Dates: start: 200903, end: 20090325
  6. PANTOPRAZOLE [Concomitant]
     Indication: HYPERCHLORHYDRIA
     Route: 065
     Dates: start: 2000
  7. MODAFINIL [Concomitant]
     Indication: POOR QUALITY SLEEP
     Route: 065
     Dates: start: 2007
  8. CALCIUM SANDOZ [Concomitant]
     Indication: VITAMIN SUPPLEMENTATION
     Route: 065
     Dates: start: 2000
  9. LEVOTHYROXINE SODIUM [Concomitant]
     Indication: HYPOTHYROIDISM
     Route: 065
     Dates: start: 1980
  10. PREDNISONE [Concomitant]
     Indication: RHEUMATOID ARTHRITIS
     Route: 065
     Dates: start: 2008
  11. MAGNESIUM HYDROXIDE, ALUMINIUM HYDROXIDE [Concomitant]
     Indication: VITAMIN SUPPLEMENTATION
     Route: 065
     Dates: start: 2009
  12. CYANOCOBALAMIN [Concomitant]
     Indication: HYPOVITAMINOSIS
     Route: 065
     Dates: start: 2005
  13. XANTOFYL [Concomitant]
     Indication: HYPOVITAMINOSIS
     Route: 065
     Dates: start: 2006
  14. CARVEDILOL [Concomitant]
     Indication: HYPERTENSION
     Route: 065
     Dates: start: 2005
  15. AREDS II FORMULA [Concomitant]
     Indication: EYE DISORDER
     Route: 065
     Dates: start: 2008
  16. TOCOPHERYL ACETATE [Concomitant]
     Indication: HYPOVITAMINOSIS
     Route: 065
     Dates: start: 2005

REACTIONS (1)
  - Metastatic neoplasm [Recovered/Resolved]
